FAERS Safety Report 9304492 (Version 1)
Quarter: 2013Q2

REPORT INFORMATION
  Report Type: Spontaneous
  Country: IN (occurrence: IN)
  Receive Date: 20130523
  Receipt Date: 20130523
  Transmission Date: 20140414
  Serious: Yes (Disabling, Other)
  Sender: FDA-Public Use
  Company Number: IN-ABBOTT-13X-078-1092461-00

PATIENT
  Age: 56 Year
  Sex: Male

DRUGS (1)
  1. VALPROATE SODIUM [Suspect]
     Indication: GRAND MAL CONVULSION

REACTIONS (14)
  - Gaze palsy [Recovered/Resolved]
  - Toxicity to various agents [Unknown]
  - Parkinsonism [Recovering/Resolving]
  - Bradykinesia [Recovering/Resolving]
  - Muscle rigidity [Recovering/Resolving]
  - Tremor [Unknown]
  - Gait disturbance [Unknown]
  - Cognitive disorder [Unknown]
  - Somnolence [Unknown]
  - Balance disorder [Unknown]
  - Encephalopathy [Unknown]
  - Dysphonia [Unknown]
  - Dysarthria [Unknown]
  - Hyperammonaemia [Unknown]
